FAERS Safety Report 19392273 (Version 4)
Quarter: 2023Q4

REPORT INFORMATION
  Report Type: Spontaneous
  Country: US (occurrence: US)
  Receive Date: 20210608
  Receipt Date: 20231026
  Transmission Date: 20240109
  Serious: Yes (Other)
  Sender: FDA-Public Use
  Company Number: US-GILEAD-2021-0534892

PATIENT
  Age: 55 Year
  Sex: Male
  Weight: 108.84 kg

DRUGS (76)
  1. ATRIPLA [Suspect]
     Active Substance: EFAVIRENZ\EMTRICITABINE\TENOFOVIR DISOPROXIL FUMARATE
     Indication: HIV infection
     Dosage: UNK
     Route: 048
     Dates: start: 2005
  2. ATRIPLA [Suspect]
     Active Substance: EFAVIRENZ\EMTRICITABINE\TENOFOVIR DISOPROXIL FUMARATE
     Dosage: UNK
     Route: 048
     Dates: start: 2008, end: 201512
  3. ATRIPLA [Suspect]
     Active Substance: EFAVIRENZ\EMTRICITABINE\TENOFOVIR DISOPROXIL FUMARATE
     Dosage: UNK
     Route: 048
     Dates: start: 2008, end: 201608
  4. TRUVADA [Suspect]
     Active Substance: EMTRICITABINE\TENOFOVIR DISOPROXIL FUMARATE
     Indication: HIV infection
     Dosage: UNK
     Route: 048
     Dates: start: 2005
  5. TRUVADA [Suspect]
     Active Substance: EMTRICITABINE\TENOFOVIR DISOPROXIL FUMARATE
     Dosage: UNK
     Route: 048
     Dates: start: 201609, end: 201709
  6. DESCOVY [Concomitant]
     Active Substance: EMTRICITABINE\TENOFOVIR ALAFENAMIDE FUMARATE
  7. GENVOYA [Concomitant]
     Active Substance: COBICISTAT\ELVITEGRAVIR\EMTRICITABINE\TENOFOVIR ALAFENAMIDE FUMARATE
  8. COMBIVIR [Concomitant]
     Active Substance: LAMIVUDINE\ZIDOVUDINE
  9. CRIXIVAN [Concomitant]
     Active Substance: INDINAVIR SULFATE
  10. NORVIR [Concomitant]
     Active Substance: RITONAVIR
  11. PREZISTA [Concomitant]
     Active Substance: DARUNAVIR ETHANOLATE
  12. RETROVIR [Concomitant]
     Active Substance: ZIDOVUDINE
  13. SUSTIVA [Concomitant]
     Active Substance: EFAVIRENZ
  14. TIVICAY [Concomitant]
     Active Substance: DOLUTEGRAVIR SODIUM
  15. VIRACEPT [Concomitant]
     Active Substance: NELFINAVIR MESYLATE
  16. CEFADROXIL [Concomitant]
     Active Substance: CEFADROXIL
  17. OXYCODONE [Concomitant]
     Active Substance: OXYCODONE
  18. SILVER SULFADIAZINE [Concomitant]
     Active Substance: SILVER SULFADIAZINE
  19. CEPHALEXIN [Concomitant]
     Active Substance: CEPHALEXIN
  20. ONDANSETRON [Concomitant]
     Active Substance: ONDANSETRON
  21. TRIAMCINOLONE [Concomitant]
     Active Substance: TRIAMCINOLONE
  22. KETOCONAZOLE [Concomitant]
     Active Substance: KETOCONAZOLE
  23. OMEPRAZOLE [Concomitant]
     Active Substance: OMEPRAZOLE
  24. GABAPENTIN [Concomitant]
     Active Substance: GABAPENTIN
  25. PROMETHAZINE [Concomitant]
     Active Substance: PROMETHAZINE HYDROCHLORIDE
  26. HYDROCODONE [Concomitant]
     Active Substance: HYDROCODONE
  27. VITAMIN D NOS [Concomitant]
     Active Substance: VITAMIN D NOS
  28. RANITIDINE [Concomitant]
     Active Substance: RANITIDINE
  29. MUPIROCIN [Concomitant]
     Active Substance: MUPIROCIN
  30. FENOFIBRATE [Concomitant]
     Active Substance: FENOFIBRATE
  31. CYCLOBENZAPRINE [Concomitant]
     Active Substance: CYCLOBENZAPRINE
  32. ATENOLOL [Concomitant]
     Active Substance: ATENOLOL
  33. LISINOPRIL [Concomitant]
     Active Substance: LISINOPRIL
  34. HYDROCHLOROTHIAZIDE [Concomitant]
     Active Substance: HYDROCHLOROTHIAZIDE
  35. METFORMIN [Concomitant]
     Active Substance: METFORMIN HYDROCHLORIDE
  36. COLESTIPOL [Concomitant]
     Active Substance: COLESTIPOL
  37. CITALOPRAM [Concomitant]
     Active Substance: CITALOPRAM HYDROBROMIDE
  38. NASONEX [Concomitant]
     Active Substance: MOMETASONE FUROATE
  39. AMOXICILLIN [Concomitant]
     Active Substance: AMOXICILLIN
  40. GLIPIZIDE [Concomitant]
     Active Substance: GLIPIZIDE
  41. FERROUS SULFATE [Concomitant]
     Active Substance: FERROUS SULFATE
  42. IBUPROFEN [Concomitant]
     Active Substance: IBUPROFEN
  43. LAMIVUDINE [Concomitant]
     Active Substance: LAMIVUDINE
  44. METOPROLOL [Concomitant]
     Active Substance: METOPROLOL
  45. CARVEDILOL [Concomitant]
     Active Substance: CARVEDILOL
  46. CLINDAMYCIN [Concomitant]
     Active Substance: CLINDAMYCIN
  47. LANTUS [Concomitant]
     Active Substance: INSULIN GLARGINE
  48. DULOXETINE [Concomitant]
     Active Substance: DULOXETINE
  49. QUETIAPINE [Concomitant]
     Active Substance: QUETIAPINE
  50. AMLODIPINE [Concomitant]
     Active Substance: AMLODIPINE BESYLATE
  51. CIPROFLOXACIN [Concomitant]
     Active Substance: CIPROFLOXACIN
  52. MIRTAZAPINE [Concomitant]
     Active Substance: MIRTAZAPINE
  53. NARCAN [Concomitant]
     Active Substance: NALOXONE HYDROCHLORIDE
  54. FLUCONAZOLE [Concomitant]
     Active Substance: FLUCONAZOLE
  55. VICTOZA [Concomitant]
     Active Substance: LIRAGLUTIDE
  56. TRULICITY [Concomitant]
     Active Substance: DULAGLUTIDE
  57. LIVALO [Concomitant]
     Active Substance: PITAVASTATIN CALCIUM
  58. HUMALOG [Concomitant]
     Active Substance: INSULIN LISPRO
  59. TAMSULOSIN [Concomitant]
     Active Substance: TAMSULOSIN
  60. TRESIBA [Concomitant]
     Active Substance: INSULIN DEGLUDEC
  61. LABETALOL [Concomitant]
     Active Substance: LABETALOL\LABETALOL HYDROCHLORIDE
  62. SULFAMYLON [Concomitant]
     Active Substance: MAFENIDE ACETATE
  63. NOVOLOG [Concomitant]
     Active Substance: INSULIN ASPART
  64. TRESIBA [Concomitant]
     Active Substance: INSULIN DEGLUDEC
  65. PRAZOSIN [Concomitant]
     Active Substance: PRAZOSIN
  66. BRIMONIDINE [Concomitant]
     Active Substance: BRIMONIDINE TARTRATE
  67. TRAZODONE [Concomitant]
     Active Substance: TRAZODONE HYDROCHLORIDE
  68. CELEBREX [Concomitant]
     Active Substance: CELECOXIB
  69. PROCHLORPERAZINE [Concomitant]
     Active Substance: PROCHLORPERAZINE
  70. PAROXETINE [Concomitant]
     Active Substance: PAROXETINE
  71. AZITHROMYCIN [Concomitant]
     Active Substance: AZITHROMYCIN
  72. SIMVASTATIN [Concomitant]
     Active Substance: SIMVASTATIN
  73. LORAZEPAM [Concomitant]
     Active Substance: LORAZEPAM
  74. ANUSOL A [Concomitant]
  75. HYDROMORPHONE [Concomitant]
     Active Substance: HYDROMORPHONE
  76. CYMBALTA [Concomitant]
     Active Substance: DULOXETINE HYDROCHLORIDE

REACTIONS (12)
  - Chronic kidney disease [Not Recovered/Not Resolved]
  - Acute kidney injury [Not Recovered/Not Resolved]
  - Bone density decreased [Unknown]
  - Pain [Not Recovered/Not Resolved]
  - Emotional distress [Not Recovered/Not Resolved]
  - Anxiety [Not Recovered/Not Resolved]
  - Anhedonia [Not Recovered/Not Resolved]
  - Anaemia [Not Recovered/Not Resolved]
  - Nightmare [Unknown]
  - Gait disturbance [Not Recovered/Not Resolved]
  - Fatigue [Not Recovered/Not Resolved]
  - Depression [Not Recovered/Not Resolved]

NARRATIVE: CASE EVENT DATE: 20111201
